FAERS Safety Report 9254776 (Version 1)
Quarter: 2013Q1

REPORT INFORMATION
  Report Type: Spontaneous
  Country: US (occurrence: None)
  Receive Date: 20121212
  Receipt Date: 20121212
  Transmission Date: 20140127
  Serious: No
  Sender: FDA-Public Use
  Company Number: 1209USA011322

PATIENT
  Age: 31 Year
  Sex: Female

DRUGS (3)
  1. PEGINTRON [Suspect]
     Indication: HEPATITIS C
     Dosage: UNK, SUBCUTANEOUS
     Route: 058
     Dates: start: 20120826
  2. REBETOL [Suspect]
     Dosage: UNK, ORAL
     Route: 048
     Dates: start: 20120826
  3. VICTRELIS [Suspect]
     Dosage: UNK, ORAL
     Route: 048
     Dates: start: 20120923

REACTIONS (6)
  - Red blood cell count decreased [None]
  - White blood cell count decreased [None]
  - Migraine [None]
  - Feeling cold [None]
  - Frustration [None]
  - Inappropriate schedule of drug administration [None]
